FAERS Safety Report 8652617 (Version 3)
Quarter: 2012Q4

REPORT INFORMATION
  Report Type: 
  Country: JP (occurrence: JP)
  Receive Date: 20120706
  Receipt Date: 20120828
  Transmission Date: 20130627
  Serious: Yes (Other)
  Sender: FDA-Public Use
  Company Number: JP-PFIZER INC-2012158837

PATIENT
  Age: 51 Year
  Sex: Female

DRUGS (7)
  1. JZOLOFT [Suspect]
     Indication: DEPRESSION
     Dosage: 50 mg, UNK
     Route: 048
  2. JZOLOFT [Suspect]
     Dosage: 37.5 mg, UNK
     Route: 048
     Dates: start: 200910
  3. JZOLOFT [Suspect]
     Dosage: 25 mg, UNK
     Route: 048
     Dates: end: 201002
  4. JZOLOFT [Suspect]
     Dosage: 12.5 mg, UNK
     Route: 048
     Dates: start: 201002, end: 201008
  5. JZOLOFT [Suspect]
     Dosage: 25 mg, UNK
     Route: 048
     Dates: start: 201008, end: 201109
  6. JZOLOFT [Suspect]
     Dosage: 50 mg, UNK
     Route: 048
     Dates: start: 201109, end: 201110
  7. JZOLOFT [Suspect]
     Dosage: 25 mg, UNK
     Route: 048
     Dates: start: 201110, end: 201206

REACTIONS (5)
  - Dyskinesia [Unknown]
  - Dysarthria [Not Recovered/Not Resolved]
  - Stress [Unknown]
  - Malaise [Unknown]
  - Hyperreflexia [Recovered/Resolved]
